FAERS Safety Report 6947913-4 (Version None)
Quarter: 2010Q3

REPORT INFORMATION
  Report Type: 
  Country: None (occurrence: None)
  Receive Date: 20100828
  Receipt Date: 20091007
  Transmission Date: 20110219
  Serious: No
  Sender: FDA-Public Use
  Company Number: US-ABBOTT-09P-163-0602016-00

PATIENT
  Sex: Male
  Weight: 83.99 kg

DRUGS (3)
  1. NIASPAN [Suspect]
     Indication: BLOOD CHOLESTEROL INCREASED
     Dates: end: 20090101
  2. NIASPAN [Suspect]
     Dates: start: 20090101, end: 20090101
  3. NIASPAN [Suspect]
     Dates: start: 20090101

REACTIONS (3)
  - CHILLS [None]
  - FLUSHING [None]
  - RASH [None]
